FAERS Safety Report 7606038-5 (Version None)
Quarter: 2011Q3

REPORT INFORMATION
  Report Type: 
  Country: None (occurrence: None)
  Receive Date: 20110713
  Receipt Date: 20110701
  Transmission Date: 20111222
  Serious: Yes (Hospitalization, Other)
  Sender: FDA-Public Use
  Company Number: PHFR2011GB00562

PATIENT
  Sex: Female

DRUGS (2)
  1. CLOZAPINE [Suspect]
     Indication: PSYCHOTIC DISORDER
     Dosage: UNK
     Route: 048
     Dates: start: 19990801, end: 20110107
  2. ANTIBIOTICS [Concomitant]
     Indication: INFECTION
     Dosage: UNK DF, UNK

REACTIONS (11)
  - INFECTION [None]
  - NIGHTMARE [None]
  - TEARFULNESS [None]
  - COMA SCALE ABNORMAL [None]
  - SYNCOPE [None]
  - INFLUENZA LIKE ILLNESS [None]
  - NEUTROPHIL COUNT DECREASED [None]
  - URINARY TRACT INFECTION [None]
  - INSOMNIA [None]
  - SOMNOLENCE [None]
  - WHITE BLOOD CELL COUNT DECREASED [None]
